FAERS Safety Report 7795961-7 (Version None)
Quarter: 2011Q4

REPORT INFORMATION
  Report Type: 
  Country: None (occurrence: None)
  Receive Date: 20111004
  Receipt Date: 20110928
  Transmission Date: 20120403
  Serious: Yes (Other)
  Sender: FDA-Public Use
  Company Number: US-BAXTER-2011BH022190

PATIENT
  Age: 73 Year
  Sex: Female

DRUGS (8)
  1. MITOMYCIN [Suspect]
     Indication: ANAL CANCER RECURRENT
     Route: 065
  2. MITOMYCIN [Suspect]
     Indication: METASTASES TO LYMPH NODES
     Route: 065
  3. CISPLATIN [Concomitant]
     Indication: ANAL CANCER
     Route: 065
  4. CETUXIMAB [Suspect]
     Route: 065
  5. FLUOROURACIL [Concomitant]
     Indication: ANAL CANCER
     Route: 065
  6. CETUXIMAB [Suspect]
     Indication: METASTASES TO LYMPH NODES
     Route: 065
  7. CETUXIMAB [Suspect]
     Indication: ANAL CANCER RECURRENT
     Route: 065
  8. CETUXIMAB [Suspect]
     Route: 065

REACTIONS (2)
  - THROMBOTIC THROMBOCYTOPENIC PURPURA [None]
  - HAEMOLYTIC URAEMIC SYNDROME [None]
